FAERS Safety Report 6886091-7 (Version None)
Quarter: 2010Q3

REPORT INFORMATION
  Report Type: 
  Country: None (occurrence: None)
  Receive Date: 20100729
  Receipt Date: 20080716
  Transmission Date: 20110219
  Serious: No
  Sender: FDA-Public Use
  Company Number: US-PFIZER INC-2008060451

PATIENT
  Age: 69 Year
  Sex: Female

DRUGS (7)
  1. CELEBREX [Suspect]
     Indication: OSTEOARTHRITIS
  2. VYTORIN [Concomitant]
     Dosage: 10/40 MG
  3. LEVOXYL [Concomitant]
  4. DETROL LA [Concomitant]
  5. MULTI-VITAMINS [Concomitant]
  6. ACETYLSALICYLIC ACID SRT [Concomitant]
     Indication: CARDIOVASCULAR EVENT PROPHYLAXIS
  7. XYZAL [Concomitant]
     Indication: HYPERSENSITIVITY

REACTIONS (2)
  - JOINT SWELLING [None]
  - OEDEMA PERIPHERAL [None]
